FAERS Safety Report 4862620-X (Version None)
Quarter: 2005Q4

REPORT INFORMATION
  Report Type: 
  Country: None (occurrence: None)
  Receive Date: 20051221
  Receipt Date: 20051208
  Transmission Date: 20060501
  Serious: Yes (Death, Hospitalization)
  Sender: FDA-Public Use
  Company Number: TR-BRISTOL-MYERS SQUIBB COMPANY-13211131

PATIENT
  Age: 73 Year
  Sex: Male

DRUGS (1)
  1. HYDROXYUREA [Suspect]
     Indication: CHRONIC MYELOID LEUKAEMIA

REACTIONS (8)
  - DYSPNOEA [None]
  - NAIL PIGMENTATION [None]
  - PALPITATIONS [None]
  - SKIN ATROPHY [None]
  - SKIN HYPERPIGMENTATION [None]
  - SQUAMOUS CELL CARCINOMA [None]
  - TREATMENT RELATED SECONDARY MALIGNANCY [None]
  - VENTRICULAR FIBRILLATION [None]
